FAERS Safety Report 8471857-2 (Version None)
Quarter: 2012Q2

REPORT INFORMATION
  Report Type: 
  Country: None (occurrence: None)
  Receive Date: 20120627
  Receipt Date: 20120619
  Transmission Date: 20120825
  Serious: Yes (Hospitalization)
  Sender: FDA-Public Use
  Company Number: US-BAYER-2012-018967

PATIENT
  Age: 48 Year
  Sex: Female
  Weight: 81 kg

DRUGS (7)
  1. YASMIN [Suspect]
     Indication: MENSTRUATION IRREGULAR
     Dosage: UNK
     Dates: start: 20070201, end: 20080601
  2. TUMS [CALCIUM CARBONATE,MAGNESIUM CARBONATE,MAGNESIUM TRISILICATE] [Concomitant]
  3. DROSPIRENONE AND ETHINYL ESTRADIOL [Suspect]
     Indication: MENSTRUATION IRREGULAR
     Dosage: UNK
     Dates: start: 20080701, end: 20090901
  4. MULTI-VITAMIN [Concomitant]
  5. ASCORBIC ACID [Concomitant]
  6. ZYRTEC [Concomitant]
     Dosage: UNK UNK, PRN
  7. TAGAMET [Concomitant]

REACTIONS (4)
  - BILIARY DYSKINESIA [None]
  - PAIN [None]
  - CHOLECYSTECTOMY [None]
  - INJURY [None]
